FAERS Safety Report 8690874 (Version 5)
Quarter: 2020Q3

REPORT INFORMATION
  Report Type: Report from Study
  Country: DE (occurrence: DE)
  Receive Date: 20120730
  Receipt Date: 20200730
  Transmission Date: 20201103
  Serious: Yes (Life-Threatening, Hospitalization)
  Sender: FDA-Public Use
  Company Number: DE-ROCHE-1092304

PATIENT
  Age: 71 Year
  Sex: Female
  Weight: 52 kg

DRUGS (8)
  1. IRINOTECAN [Suspect]
     Active Substance: IRINOTECAN
     Indication: COLORECTAL CANCER METASTATIC
     Dosage: 1 X 2 HOURS?LAST DOSE PRIOR TO SAE 11/JULY/2012
     Route: 042
  2. CAPECITABINE. [Suspect]
     Active Substance: CAPECITABINE
     Dosage: 2 TABLETS IN THE MORNING AND 2 TABLETS IN THE EVENING.
     Route: 048
     Dates: start: 20120801
  3. CAPECITABINE. [Suspect]
     Active Substance: CAPECITABINE
     Indication: COLORECTAL CANCER METASTATIC
     Dosage: 3 TABLETS IN THE MORNING AND 2 TABLETS IN THE EVENING. LAST DOSE PRIOR TO SAE WAS TAKEN ON 22/JUL/20
     Route: 048
     Dates: start: 20120711
  4. IRINOTECAN [Suspect]
     Active Substance: IRINOTECAN
     Route: 042
     Dates: start: 20120801
  5. LEVOTHYROXIN [Concomitant]
     Active Substance: LEVOTHYROXINE
     Dates: start: 20120723
  6. BEVACIZUMAB. [Suspect]
     Active Substance: BEVACIZUMAB
     Indication: COLORECTAL CANCER METASTATIC
     Dosage: 1 X 90 MINUTES. LAST DOSE PRIOR TO SAE WAS TAKEN ON 11/JUL/2012
     Route: 042
     Dates: start: 20120711
  7. NOVONORM [Concomitant]
     Active Substance: REPAGLINIDE
     Dosage: 2 1/2 MG DAILY DOSE
     Dates: start: 20120722
  8. LANTUS [Concomitant]
     Active Substance: INSULIN GLARGINE
     Dosage: 10 I. E DAILY DOSE
     Dates: start: 20120722

REACTIONS (4)
  - Pulmonary oedema [Recovered/Resolved]
  - Supraventricular tachycardia [Recovered/Resolved]
  - Diarrhoea [Recovered/Resolved]
  - Dehydration [Recovered/Resolved]

NARRATIVE: CASE EVENT DATE: 20120722
